FAERS Safety Report 20978978 (Version 2)
Quarter: 2022Q4

REPORT INFORMATION
  Report Type: Spontaneous
  Country: US (occurrence: US)
  Receive Date: 20220619
  Receipt Date: 20221101
  Transmission Date: 20230112
  Serious: No
  Sender: FDA-Public Use
  Company Number: US-SA-SAC20220615002018

PATIENT
  Age: 51 Year
  Sex: Female

DRUGS (1)
  1. AUBAGIO [Suspect]
     Active Substance: TERIFLUNOMIDE
     Indication: Multiple sclerosis
     Dosage: 14 MG, QD
     Route: 048
     Dates: start: 20211209

REACTIONS (6)
  - Muscle spasms [Unknown]
  - Musculoskeletal stiffness [Unknown]
  - Pain [Unknown]
  - Sensory disturbance [Unknown]
  - Paraesthesia [Unknown]
  - Headache [Unknown]
